FAERS Safety Report 5645221-5 (Version None)
Quarter: 2008Q1

REPORT INFORMATION
  Report Type: 
  Country: None (occurrence: None)
  Receive Date: 20080229
  Receipt Date: 20080129
  Transmission Date: 20080703
  Serious: No
  Sender: FDA-Public Use
  Company Number: PR-BAYER-200812595NA

PATIENT
  Age: 58 Year
  Sex: Female

DRUGS (1)
  1. AVELOX [Suspect]
     Indication: DRUG USE FOR UNKNOWN INDICATION
     Route: 048
     Dates: start: 20080101

REACTIONS (3)
  - HYPERSENSITIVITY [None]
  - PRURITUS [None]
  - PRURITUS GENERALISED [None]
